FAERS Safety Report 8399988-6 (Version None)
Quarter: 2012Q2

REPORT INFORMATION
  Report Type: 
  Country: None (occurrence: None)
  Receive Date: 20120531
  Receipt Date: 20120523
  Transmission Date: 20120825
  Serious: Yes (Other)
  Sender: FDA-Public Use
  Company Number: US-UCBSA-058099

PATIENT
  Age: 30 Year
  Sex: Female

DRUGS (2)
  1. KEPPRA XR [Suspect]
     Indication: EPILEPSY
     Dosage: DOSE: 3000 MG
  2. TOPAMAX [Suspect]
     Indication: EPILEPSY
     Dosage: DOSE: 400 MG

REACTIONS (2)
  - ABORTION SPONTANEOUS [None]
  - UNINTENDED PREGNANCY [None]
